FAERS Safety Report 12494954 (Version 2)
Quarter: 2016Q3

REPORT INFORMATION
  Report Type: Spontaneous
  Country: US (occurrence: US)
  Receive Date: 20160624
  Receipt Date: 20160701
  Transmission Date: 20161109
  Serious: No
  Sender: FDA-Public Use
  Company Number: US-HORIZON-RAV-0112-2016

PATIENT
  Age: 3 Year
  Sex: Male

DRUGS (2)
  1. CITRULLINE [Concomitant]
     Active Substance: CITRULLINE
     Indication: SUPPLEMENTATION THERAPY
  2. RAVICTI [Suspect]
     Active Substance: GLYCEROL PHENYLBUTYRATE
     Indication: ORNITHINE TRANSCARBAMOYLASE DEFICIENCY
     Dosage: 2 ML TID
     Dates: start: 20150930

REACTIONS (1)
  - Irritability [Recovered/Resolved]
